FAERS Safety Report 16481551 (Version 1)
Quarter: 2019Q2

REPORT INFORMATION
  Report Type: Other
  Country: DE (occurrence: DE)
  Receive Date: 20190627
  Receipt Date: 20190627
  Transmission Date: 20190711
  Serious: No
  Sender: FDA-Public Use
  Company Number: DE-LUPIN PHARMACEUTICALS INC.-2019-02128

PATIENT
  Age: 72 Year
  Sex: Female
  Weight: 69 kg

DRUGS (5)
  1. SIMVASTATIN. [Suspect]
     Active Substance: SIMVASTATIN
     Dosage: 20 MILLIGRAM
     Route: 048
     Dates: start: 201807, end: 201807
  2. SIMVASTATIN. [Suspect]
     Active Substance: SIMVASTATIN
     Indication: MYOCARDIAL INFARCTION
     Dosage: 40 MILLIGRAM
     Route: 048
     Dates: start: 201406, end: 201501
  3. RAMIPRIL. [Concomitant]
     Active Substance: RAMIPRIL
     Indication: HYPERTENSION
     Dosage: 5 MILLIGRAM
     Route: 048
     Dates: start: 201512
  4. ATORVASTATIN CALCIUM. [Suspect]
     Active Substance: ATORVASTATIN CALCIUM
     Indication: MYOCARDIAL INFARCTION
     Dosage: 10 MILLIGRAM
     Route: 048
     Dates: start: 201807, end: 201809
  5. AMLODIPIN                          /00972401/ [Concomitant]
     Active Substance: AMLODIPINE BESYLATE
     Indication: HYPERTENSION
     Dosage: 5 MILLIGRAM
     Route: 048
     Dates: start: 201512

REACTIONS (3)
  - Musculoskeletal pain [Recovering/Resolving]
  - Muscular weakness [Recovering/Resolving]
  - Pain in extremity [Recovering/Resolving]
